FAERS Safety Report 21118702 (Version 1)
Quarter: 2022Q3

REPORT INFORMATION
  Report Type: Report from Study
  Country: US (occurrence: US)
  Receive Date: 20220722
  Receipt Date: 20220722
  Transmission Date: 20221026
  Serious: Yes (Hospitalization)
  Sender: FDA-Public Use
  Company Number: US-ABBVIE-22K-163-4465139-00

PATIENT
  Sex: Male

DRUGS (1)
  1. VENCLEXTA [Suspect]
     Active Substance: VENETOCLAX
     Indication: Chronic lymphocytic leukaemia
     Route: 048
     Dates: start: 202205, end: 2022

REACTIONS (3)
  - Unevaluable event [Unknown]
  - Haemoptysis [Unknown]
  - Pneumonia [Unknown]

NARRATIVE: CASE EVENT DATE: 20220101
